FAERS Safety Report 9171077 (Version 1)
Quarter: 2013Q1

REPORT INFORMATION
  Report Type: Spontaneous
  Country: US (occurrence: US)
  Receive Date: 20130319
  Receipt Date: 20130319
  Transmission Date: 20140127
  Serious: Yes (Other)
  Sender: FDA-Public Use
  Company Number: PHEH2013US005791

PATIENT
  Sex: Female

DRUGS (7)
  1. ARCAPTA [Suspect]
  2. SPIRIVA [Suspect]
  3. PREDNISONE [Concomitant]
  4. ESOMEPRAZOLE [Concomitant]
  5. THEOPHYLLINE [Concomitant]
  6. LEVOTHYROXINE [Concomitant]
  7. AMLODIPINE BESILATE [Concomitant]

REACTIONS (2)
  - Memory impairment [Unknown]
  - Bronchitis [Unknown]
